FAERS Safety Report 24571566 (Version 1)
Quarter: 2024Q4

REPORT INFORMATION
  Report Type: Spontaneous
  Country: FR (occurrence: FR)
  Receive Date: 20241101
  Receipt Date: 20241101
  Transmission Date: 20250114
  Serious: Yes (Hospitalization, Other)
  Sender: AUROBINDO
  Company Number: FR-AFSSAPS-LL2024001938

PATIENT
  Age: 22 Year
  Sex: Male

DRUGS (4)
  1. SERTRALINE [Suspect]
     Active Substance: SERTRALINE HYDROCHLORIDE
     Indication: Depression
     Dosage: 50 MILLIGRAM
     Route: 048
     Dates: start: 20240905
  2. APIXABAN [Suspect]
     Active Substance: APIXABAN
     Indication: Thrombosis
     Dosage: UNK
     Route: 048
     Dates: start: 20240913
  3. VALPROATE SODIUM [Suspect]
     Active Substance: VALPROATE SODIUM
     Indication: Epilepsy
     Dosage: 1000 MILLIGRAM
     Route: 048
     Dates: start: 20240924
  4. FIDAXOMICIN [Suspect]
     Active Substance: FIDAXOMICIN
     Indication: Infection
     Dosage: 200 MILLIGRAM (48 HOURS)
     Route: 065
     Dates: end: 20241001

REACTIONS (1)
  - Neutropenia [Recovered/Resolved]

NARRATIVE: CASE EVENT DATE: 20241009
